FAERS Safety Report 7023459-2 (Version None)
Quarter: 2010Q3

REPORT INFORMATION
  Report Type: 
  Country: None (occurrence: None)
  Receive Date: 20100929
  Receipt Date: 20100913
  Transmission Date: 20110219
  Serious: Yes (Hospitalization)
  Sender: FDA-Public Use
  Company Number: 2010003826

PATIENT
  Sex: Male
  Weight: 77.2 kg

DRUGS (3)
  1. ERLOTINIB (ERLOTINIB) (TABLET) (ERLOTINIB) [Suspect]
     Indication: PANCREATIC CARCINOMA METASTATIC
     Dosage: 100 MG, QD, ORAL
     Route: 048
     Dates: start: 20100812
  2. GEMCITABINE [Suspect]
     Indication: PANCREATIC CARCINOMA METASTATIC
     Dosage: 1000 MG/M2, DAYS 1, 8, 15, INTRAVENOUS
     Route: 042
     Dates: start: 20100812
  3. IMC-A12 (INJECTION FOR INFUSION) [Suspect]
     Indication: PANCREATIC CARCINOMA METASTATIC
     Dosage: 6 MG/KG, DAYS 1, 8, 15 AND 22, INTRAVENOUS
     Route: 042
     Dates: start: 20100812

REACTIONS (5)
  - DRUG TOXICITY [None]
  - MUSCULAR WEAKNESS [None]
  - NAUSEA [None]
  - PAIN [None]
  - VOMITING [None]
